FAERS Safety Report 20223292 (Version 2)
Quarter: 2023Q1

REPORT INFORMATION
  Report Type: Report from Study
  Country: US (occurrence: US)
  Receive Date: 20211223
  Receipt Date: 20230214
  Transmission Date: 20230418
  Serious: No
  Sender: FDA-Public Use
  Company Number: US-KYOWAKIRIN-2021BKK021222

PATIENT

DRUGS (3)
  1. CRYSVITA [Suspect]
     Active Substance: BUROSUMAB-TWZA
     Indication: Hereditary hypophosphataemic rickets
     Dosage: STRENGTH 20 AND 30 MG/ML COMBINED TO ACHIEVE DOSE OF 80 MG, EVERY 4 WEEKS
     Route: 058
     Dates: start: 20200804
  2. CRYSVITA [Suspect]
     Active Substance: BUROSUMAB-TWZA
     Indication: Hereditary hypophosphataemic rickets
     Dosage: STRENGTH 20 AND 30 MG/ML COMBINED TO ACHIEVE DOSE OF 80 MG, EVERY 4 WEEKS
     Route: 058
     Dates: start: 20200804
  3. CRYSVITA [Suspect]
     Active Substance: BUROSUMAB-TWZA
     Indication: Hereditary hypophosphataemic rickets
     Dosage: UNK
     Route: 065

REACTIONS (6)
  - Upper respiratory tract infection [Unknown]
  - Pyrexia [Recovered/Resolved]
  - Blood phosphorus decreased [Recovered/Resolved]
  - Abdominal pain upper [Recovered/Resolved]
  - Abdominal pain upper [Recovered/Resolved]
  - Vitamin D decreased [Recovered/Resolved]

NARRATIVE: CASE EVENT DATE: 20221101
